FAERS Safety Report 4440114-3 (Version None)
Quarter: 2004Q3

REPORT INFORMATION
  Report Type: 
  Country: None (occurrence: None)
  Receive Date: 20040831
  Receipt Date: 20040720
  Transmission Date: 20050211
  Serious: No
  Sender: FDA-Public Use
  Company Number: 702169

PATIENT
  Age: 45 Year
  Sex: Female

DRUGS (6)
  1. AMEVIVE [Suspect]
     Indication: PSORIASIS
     Dosage: 15 MG QW IM
     Route: 030
     Dates: start: 20040101, end: 20040309
  2. AMEVIVE [Suspect]
     Indication: PSORIASIS
     Dosage: 15 MG QW IM
     Route: 030
     Dates: start: 20040415, end: 20040615
  3. SYNTHROID [Concomitant]
  4. CELEXA [Concomitant]
  5. GLUCOPHAGE [Concomitant]
  6. ATENOLOL [Concomitant]

REACTIONS (1)
  - CD4 LYMPHOCYTES DECREASED [None]
